FAERS Safety Report 9189951 (Version 3)
Quarter: 2013Q2

REPORT INFORMATION
  Report Type: Spontaneous
  Country: US (occurrence: US)
  Receive Date: 20130326
  Receipt Date: 20130430
  Transmission Date: 20140414
  Serious: No
  Sender: FDA-Public Use
  Company Number: US-PFIZER INC-2013096420

PATIENT
  Age: 52 Year
  Sex: Female
  Weight: 90.7 kg

DRUGS (3)
  1. PANTOPRAZOLE [Suspect]
     Indication: DYSPEPSIA
     Dosage: 20 MG, DAILY
     Dates: start: 20130322
  2. PANTOPRAZOLE [Suspect]
     Indication: ABDOMINAL PAIN UPPER
     Dosage: UNK
  3. AMBIEN CR [Concomitant]
     Indication: INSOMNIA
     Dosage: 12.5 MG, 1X/DAY (DAILY)
     Dates: start: 2005

REACTIONS (4)
  - Hypoaesthesia [Recovering/Resolving]
  - Pruritus [Recovering/Resolving]
  - Abdominal discomfort [Recovering/Resolving]
  - Food allergy [Unknown]
